FAERS Safety Report 9266835 (Version 1)
Quarter: 2013Q2

REPORT INFORMATION
  Report Type: Spontaneous
  Country: US (occurrence: US)
  Receive Date: 20130502
  Receipt Date: 20130502
  Transmission Date: 20140414
  Serious: No
  Sender: FDA-Public Use
  Company Number: US-B.I. PHARMACEUTICALS,INC./RIDGEFIELD-2013-BI-11044BP

PATIENT
  Sex: Female
  Weight: 73 kg

DRUGS (7)
  1. CATAPRES TTS [Suspect]
     Indication: HYPERTENSION
     Dosage: 1.0714 MG
     Route: 061
     Dates: start: 2011
  2. METFORMIN [Concomitant]
     Indication: DIABETES MELLITUS
  3. AMLODIPINE [Concomitant]
     Indication: HYPERTENSION
  4. CARVEDILOL [Concomitant]
     Indication: HYPERTENSION
  5. LIPITOR [Concomitant]
     Indication: BLOOD CHOLESTEROL INCREASED
  6. PLAVIX [Concomitant]
     Indication: HYPERTENSION
     Dosage: 75 MG
     Route: 048
  7. GLYBURIDE [Concomitant]
     Indication: DIABETES MELLITUS

REACTIONS (3)
  - Application site pruritus [Not Recovered/Not Resolved]
  - Application site pain [Not Recovered/Not Resolved]
  - Application site haemorrhage [Recovered/Resolved]
